FAERS Safety Report 8164055-3 (Version None)
Quarter: 2012Q1

REPORT INFORMATION
  Report Type: 
  Country: None (occurrence: None)
  Receive Date: 20120224
  Receipt Date: 20120214
  Transmission Date: 20120608
  Serious: Yes (Other)
  Sender: FDA-Public Use
  Company Number: PHHY2010CA28002

PATIENT
  Sex: Female

DRUGS (1)
  1. SANDOSTATIN LAR [Suspect]
     Indication: CARCINOID TUMOUR
     Dosage: 30 MG, EVERY 4 WEEKS
     Route: 030
     Dates: start: 20030924, end: 20050628

REACTIONS (24)
  - SUICIDAL IDEATION [None]
  - NEOPLASM PROGRESSION [None]
  - ABDOMINAL HERNIA [None]
  - NEOPLASM MALIGNANT [None]
  - INJECTION SITE SWELLING [None]
  - INJECTION SITE DISCOMFORT [None]
  - ANXIETY [None]
  - DIARRHOEA [None]
  - AMNESIA [None]
  - FIBROMA [None]
  - NAUSEA [None]
  - CONSTIPATION [None]
  - HEADACHE [None]
  - PARAESTHESIA [None]
  - GAIT DISTURBANCE [None]
  - FATIGUE [None]
  - EPISTAXIS [None]
  - VOMITING [None]
  - DEPRESSION [None]
  - DEPRESSED MOOD [None]
  - INJECTION SITE PAIN [None]
  - BRAIN NEOPLASM [None]
  - ABDOMINAL PAIN [None]
  - BURNING SENSATION [None]
